FAERS Safety Report 4296903-1 (Version None)
Quarter: 2004Q1

REPORT INFORMATION
  Report Type: 
  Country: None (occurrence: None)
  Receive Date: 20040217
  Receipt Date: 20040205
  Transmission Date: 20041129
  Serious: Yes (Hospitalization)
  Sender: FDA-Public Use
  Company Number: FR-BRISTOL-MYERS SQUIBB COMPANY-12497319

PATIENT
  Age: 62 Year
  Sex: Female
  Weight: 53 kg

DRUGS (3)
  1. BUSPAR [Suspect]
     Route: 048
  2. SEROPRAM [Suspect]
     Route: 048
  3. CREON [Suspect]
     Route: 048

REACTIONS (4)
  - ARTHRALGIA [None]
  - CONJUNCTIVITIS [None]
  - CUTANEOUS VASCULITIS [None]
  - PERIPHERAL VASCULAR DISORDER [None]
